FAERS Safety Report 15706721 (Version 2)
Quarter: 2019Q1

REPORT INFORMATION
  Report Type: Spontaneous
  Country: JP (occurrence: JP)
  Receive Date: 20181210
  Receipt Date: 20190212
  Transmission Date: 20190417
  Serious: Yes (Life-Threatening, Hospitalization, Disabling, Other)
  Sender: FDA-Public Use
  Company Number: JP-ALLERGAN-1851965US

PATIENT
  Age: 59 Year
  Sex: Female

DRUGS (3)
  1. BOTOX [Suspect]
     Active Substance: ONABOTULINUMTOXINA
     Dosage: 110 UNITS, SINGLE
     Route: 030
     Dates: start: 20181009, end: 20181009
  2. BOTOX [Suspect]
     Active Substance: ONABOTULINUMTOXINA
     Indication: TORTICOLLIS
     Dosage: UNK
     Route: 030
  3. BOTOX [Suspect]
     Active Substance: ONABOTULINUMTOXINA
     Indication: MUSCLE SPASTICITY
     Dosage: 240 UNITS, SINGLE
     Route: 030
     Dates: start: 20181009, end: 20181009

REACTIONS (7)
  - Prescribed overdose [Unknown]
  - Pneumonia aspiration [Recovered/Resolved with Sequelae]
  - Multiple system atrophy [Not Recovered/Not Resolved]
  - Disease progression [Not Recovered/Not Resolved]
  - Dyspnoea [Recovering/Resolving]
  - Vocal cord dysfunction [Recovered/Resolved with Sequelae]
  - Dysphagia [Unknown]

NARRATIVE: CASE EVENT DATE: 201810
